FAERS Safety Report 4847732-9 (Version None)
Quarter: 2005Q4

REPORT INFORMATION
  Report Type: 
  Country: None (occurrence: None)
  Receive Date: 20051205
  Receipt Date: 20031117
  Transmission Date: 20060501
  Serious: Yes (Hospitalization)
  Sender: FDA-Public Use
  Company Number: GXKR2003GB00762

PATIENT
  Age: 48 Year
  Sex: Female

DRUGS (3)
  1. FOLIC ACID (NGX)(FOLIC ACID) UNKNOWN [Suspect]
     Dosage: 5 MG, QD
  2. TRIMETHOPRIM [Suspect]
     Indication: URINARY TRACT INFECTION
     Dosage: 200 MG
  3. METHOTREXATE [Suspect]
     Dosage: 10 MG, QW

REACTIONS (3)
  - DRUG INTERACTION [None]
  - HAEMOLYTIC ANAEMIA [None]
  - METASTASES TO BONE MARROW [None]
